FAERS Safety Report 7190166-5 (Version None)
Quarter: 2010Q4

REPORT INFORMATION
  Report Type: 
  Country: None (occurrence: None)
  Receive Date: 20101223
  Receipt Date: 20101221
  Transmission Date: 20110411
  Serious: Yes (Life-Threatening)
  Sender: FDA-Public Use
  Company Number: FR-AMGEN-FRASP2010010232

PATIENT

DRUGS (5)
  1. VECTIBIX [Suspect]
     Indication: COLON CANCER
     Dosage: 500 MG, UNK
     Route: 042
     Dates: start: 20100617, end: 20100617
  2. DEXERYL                            /00557601/ [Concomitant]
  3. TOLEXINE                           /00055701/ [Concomitant]
     Dosage: 1 UNK, QD
     Route: 048
  4. CAMPTOSAR [Concomitant]
     Dosage: UNK
     Dates: start: 20100101
  5. FLUOROURACIL [Concomitant]
     Dosage: UNK
     Dates: start: 20100101

REACTIONS (1)
  - DERMATITIS ACNEIFORM [None]
